FAERS Safety Report 5102634-8 (Version None)
Quarter: 2006Q3

REPORT INFORMATION
  Report Type: 
  Country: None (occurrence: None)
  Receive Date: 20060912
  Receipt Date: 20060905
  Transmission Date: 20061208
  Serious: Yes (Other)
  Sender: FDA-Public Use
  Company Number: US-JNJFOC-20060900922

PATIENT
  Sex: Female
  Weight: 76.43 kg

DRUGS (2)
  1. REMICADE [Suspect]
     Indication: ANKYLOSING SPONDYLITIS
     Route: 042
  2. RELAFEN [Concomitant]
     Indication: ANKYLOSING SPONDYLITIS

REACTIONS (2)
  - ANKYLOSING SPONDYLITIS [None]
  - INTERVERTEBRAL DISC DISORDER [None]
